FAERS Safety Report 6292505-6 (Version None)
Quarter: 2009Q3

REPORT INFORMATION
  Report Type: 
  Country: None (occurrence: None)
  Receive Date: 20090731
  Receipt Date: 20090702
  Transmission Date: 20100115
  Serious: Yes (Other)
  Sender: FDA-Public Use
  Company Number: CA-PFIZER INC-2009235435

PATIENT
  Age: 80 Year

DRUGS (9)
  1. DILANTIN [Suspect]
     Indication: GRAND MAL CONVULSION
     Dosage: 300 MG, 1X/DAY
     Dates: start: 20071201
  2. COZAAR [Concomitant]
     Indication: HYPERTENSION
     Dosage: UNK
  3. SYNTHROID [Concomitant]
     Indication: HYPOTHYROIDISM
     Dosage: UNK
  4. METFORMIN [Concomitant]
     Dosage: UNK
  5. ASPIRIN [Concomitant]
     Dosage: 80 MG, UNK
  6. AGGRENOX [Concomitant]
     Dosage: UNK
  7. EZETROL [Concomitant]
     Dosage: UNK
  8. CALCIUM CARBONATE/COLECALCIFEROL [Concomitant]
     Dosage: UNK
  9. GLUCOSAMINE [Concomitant]
     Dosage: UNK

REACTIONS (4)
  - ANTICONVULSANT DRUG LEVEL BELOW THERAPEUTIC [None]
  - CARDIAC OPERATION [None]
  - GRAND MAL CONVULSION [None]
  - TONGUE BITING [None]
